FAERS Safety Report 8482810 (Version 10)
Quarter: 2013Q1

REPORT INFORMATION
  Report Type: Spontaneous
  Country: US (occurrence: US)
  Receive Date: 20120329
  Receipt Date: 20130116
  Transmission Date: 20140127
  Serious: Yes (Hospitalization, Disabling, Other)
  Sender: FDA-Public Use
  Company Number: US-009507513-1203USA03368

PATIENT
  Sex: 0

DRUGS (5)
  1. FOSAMAX [Suspect]
     Indication: OSTEOPENIA
     Dosage: 10 MG, QD
     Route: 048
     Dates: start: 2000, end: 200202
  2. FOSAMAX [Suspect]
     Indication: OSTEOPOROSIS
     Dosage: 70 MG, QW
     Route: 048
     Dates: start: 20020220, end: 20060131
  3. FOSAMAX [Suspect]
     Indication: OSTEOPENIA
     Dosage: 70 MG, UNK
     Route: 048
     Dates: start: 200903, end: 201008
  4. FOSAMAX [Suspect]
     Indication: OSTEOPOROSIS
  5. ALENDRONATE SODIUM [Suspect]
     Dosage: 70 MG, UNK
     Dates: start: 20090327

REACTIONS (69)
  - Femur fracture [Recovered/Resolved]
  - Fracture nonunion [Recovered/Resolved with Sequelae]
  - Bone disorder [Not Recovered/Not Resolved]
  - Osteoporosis [Not Recovered/Not Resolved]
  - Multiple fractures [Not Recovered/Not Resolved]
  - Femur fracture [Not Recovered/Not Resolved]
  - Low turnover osteopathy [Not Recovered/Not Resolved]
  - Fracture nonunion [Not Recovered/Not Resolved]
  - Fracture nonunion [Unknown]
  - Stress fracture [Not Recovered/Not Resolved]
  - Respiratory arrest [Recovered/Resolved]
  - Anaemia postoperative [Unknown]
  - Post procedural haemorrhage [Unknown]
  - Basal cell carcinoma [Unknown]
  - Fall [Unknown]
  - Post procedural haemorrhage [Unknown]
  - Femur fracture [Recovered/Resolved]
  - Radius fracture [Unknown]
  - Fall [Unknown]
  - Vitamin D deficiency [Unknown]
  - Hypertension [Unknown]
  - Hyperlipidaemia [Unknown]
  - Cardiac valve disease [Unknown]
  - Osteoarthritis [Unknown]
  - Immobile [Unknown]
  - Left ventricular hypertrophy [Unknown]
  - Goitre [Unknown]
  - Foot deformity [Unknown]
  - Bunion [Unknown]
  - Gouty arthritis [Unknown]
  - Exostosis [Unknown]
  - Spinal osteoarthritis [Unknown]
  - Scoliosis [Unknown]
  - Forearm fracture [Unknown]
  - Ulna fracture [Unknown]
  - Road traffic accident [Unknown]
  - Device breakage [Unknown]
  - Syncope [Unknown]
  - Dehydration [Unknown]
  - Vasodilatation [Unknown]
  - Cataract [Unknown]
  - Atrioventricular block first degree [Unknown]
  - Pulmonary arterial pressure increased [Unknown]
  - Lacunar infarction [Unknown]
  - Presyncope [Unknown]
  - Patellofemoral pain syndrome [Unknown]
  - Syncope [Unknown]
  - Road traffic accident [Unknown]
  - Rectal haemorrhage [Unknown]
  - Radius fracture [Unknown]
  - Haemangioma of bone [Unknown]
  - Vascular calcification [Unknown]
  - Haematochezia [Unknown]
  - Cerebral atrophy [Unknown]
  - Weight increased [Unknown]
  - Nausea [Unknown]
  - Rash [Unknown]
  - Arthralgia [Not Recovered/Not Resolved]
  - Raynaud^s phenomenon [Unknown]
  - Dyspnoea exertional [Unknown]
  - Palpitations [Unknown]
  - Cardiac murmur [Unknown]
  - Headache [Unknown]
  - Anaemia [Unknown]
  - Paraesthesia [Unknown]
  - Drug administration error [Unknown]
  - Arthralgia [Not Recovered/Not Resolved]
  - Alopecia [Recovered/Resolved]
  - VIIth nerve paralysis [Unknown]
